FAERS Safety Report 23278157 (Version 1)
Quarter: 2023Q4

REPORT INFORMATION
  Report Type: Spontaneous
  Country: CN (occurrence: CN)
  Receive Date: 20231208
  Receipt Date: 20231208
  Transmission Date: 20240110
  Serious: Yes (Life-Threatening)
  Sender: FDA-Public Use
  Company Number: CN-BAYER-2023A176577

PATIENT
  Age: 54 Year
  Sex: Female
  Weight: 42.5 kg

DRUGS (2)
  1. ULTRAVIST [Suspect]
     Active Substance: IOPROMIDE
     Indication: Computerised tomogram abdomen
     Dosage: 72 ML, ONCE
     Route: 042
     Dates: start: 20231129, end: 20231129
  2. ULTRAVIST [Suspect]
     Active Substance: IOPROMIDE
     Indication: Abdominal pain

REACTIONS (14)
  - Anaphylactic shock [Recovering/Resolving]
  - Pulmonary oedema [None]
  - Loss of consciousness [Recovering/Resolving]
  - Delirium [Recovering/Resolving]
  - Respiratory arrest [Recovering/Resolving]
  - Oxygen saturation immeasurable [Recovered/Resolved]
  - Cyanosis [None]
  - Peripheral coldness [None]
  - Pupillary light reflex tests abnormal [None]
  - Breath sounds abnormal [None]
  - Sputum discoloured [None]
  - Productive cough [Recovering/Resolving]
  - Heart rate increased [None]
  - Blood pressure increased [None]

NARRATIVE: CASE EVENT DATE: 20231129
